FAERS Safety Report 10599655 (Version 1)
Quarter: 2014Q4

REPORT INFORMATION
  Report Type: Spontaneous
  Country: GB (occurrence: GB)
  Receive Date: 20141121
  Receipt Date: 20141121
  Transmission Date: 20150529
  Serious: Yes (Death, Other)
  Sender: FDA-Public Use
  Company Number: GB-ACTAVIS-2014-24977

PATIENT
  Sex: Male
  Weight: 63 kg

DRUGS (3)
  1. ACYCLOVIR (UNKNOWN) [Suspect]
     Active Substance: ACYCLOVIR
     Dosage: 10 MG/KG, TID (30 MG/KG DAILY)
     Route: 042
     Dates: start: 20141006, end: 201410
  2. ACYCLOVIR (UNKNOWN) [Suspect]
     Active Substance: ACYCLOVIR
     Dosage: 10 MG/KG, BID (20 MG/KG DAILY)
     Route: 042
     Dates: start: 2014, end: 20141002
  3. ACYCLOVIR (UNKNOWN) [Suspect]
     Active Substance: ACYCLOVIR
     Indication: HERPES ZOSTER
     Dosage: 1 G, TID (3 G DAILY; 5 DOSES)
     Route: 042
     Dates: start: 20141006, end: 201410

REACTIONS (3)
  - Coma [Not Recovered/Not Resolved]
  - Overdose [Unknown]
  - Neurotoxicity [Fatal]

NARRATIVE: CASE EVENT DATE: 201410
